FAERS Safety Report 8862971 (Version 1)
Quarter: 2012Q4

REPORT INFORMATION
  Report Type: 
  Country: US (occurrence: US)
  Receive Date: 20121026
  Receipt Date: 20121026
  Transmission Date: 20130627
  Serious: No
  Sender: FDA-Public Use
  Company Number: US-ALLERGAN-1204359US

PATIENT
  Age: 61 Year
  Sex: Female

DRUGS (2)
  1. ALPHAGAN P [Suspect]
     Indication: GLAUCOMA
     Dosage: 2 Gtt, bid
     Route: 047
     Dates: start: 2011, end: 20120326
  2. LATANOPROST [Concomitant]
     Indication: GLAUCOMA
     Dosage: 2 Gtt, qhs
     Route: 047

REACTIONS (10)
  - Abnormal sensation in eye [Recovering/Resolving]
  - Eye discharge [Recovering/Resolving]
  - Conjunctivitis allergic [Recovering/Resolving]
  - Eye allergy [Recovering/Resolving]
  - Burning sensation [Recovering/Resolving]
  - Eye pruritus [Recovering/Resolving]
  - Vision blurred [Recovering/Resolving]
  - Eyelid oedema [Recovering/Resolving]
  - Dry eye [Recovering/Resolving]
  - Ocular hyperaemia [Recovering/Resolving]
